FAERS Safety Report 14626914 (Version 1)
Quarter: 2018Q1

REPORT INFORMATION
  Report Type: Spontaneous
  Country: DE (occurrence: DE)
  Receive Date: 20180312
  Receipt Date: 20180312
  Transmission Date: 20180509
  Serious: Yes (Other)
  Sender: FDA-Public Use
  Company Number: DE-JAZZ-2018-DE-003524

PATIENT
  Age: 73 Year
  Sex: Female

DRUGS (5)
  1. RITUXIMAB. [Concomitant]
     Active Substance: RITUXIMAB
     Indication: ACUTE LYMPHOCYTIC LEUKAEMIA
     Dosage: IN GMALL ELDERLY REGIMEN, ON DAY 1, 2 AND 3
  2. VINCRISTINE [Concomitant]
     Active Substance: VINCRISTINE
     Indication: ACUTE LYMPHOCYTIC LEUKAEMIA
     Dosage: INDUCTION PHASE I
  3. ASPARAGINASE [Suspect]
     Active Substance: ASPARAGINASE
     Indication: ACUTE LYMPHOCYTIC LEUKAEMIA
     Dosage: INDUCTION PHASE 1
  4. SPECTRILA [Suspect]
     Active Substance: ASPARAGINASE
     Indication: ACUTE LYMPHOCYTIC LEUKAEMIA
     Dosage: HIGH DOSE, IN GMALL ELDERLY REGIMEN, ON DAY 1, 2 AND 3
  5. METHOTREXATE. [Interacting]
     Active Substance: METHOTREXATE
     Indication: ACUTE LYMPHOCYTIC LEUKAEMIA
     Dosage: HIGH DOSE, IN GMALL ELDERLY REGIMEN ON DAY 1, 2 AND 3
     Route: 037

REACTIONS (4)
  - Ketoacidosis [Unknown]
  - Paresis [Unknown]
  - Drug interaction [Unknown]
  - Hyperglycaemia [Unknown]
